FAERS Safety Report 10374190 (Version 2)
Quarter: 2014Q4

REPORT INFORMATION
  Report Type: Report from Study
  Country: JP (occurrence: JP)
  Receive Date: 20140811
  Receipt Date: 20141031
  Transmission Date: 20150528
  Serious: No
  Sender: FDA-Public Use
  Company Number: JP-UCBSA-2014008026

PATIENT
  Age: 74 Year
  Sex: Male
  Weight: 69 kg

DRUGS (14)
  1. PREDNISOLONE. [Concomitant]
     Active Substance: PREDNISOLONE
     Dosage: DAILY DOSE: 5MG
     Route: 048
     Dates: end: 20140108
  2. PREDNISOLONE. [Concomitant]
     Active Substance: PREDNISOLONE
     Dosage: DAILY DOSE: 3MG
     Route: 048
     Dates: start: 20140109
  3. BONALON [Concomitant]
     Active Substance: ALENDRONATE SODIUM
     Dosage: UNK
     Route: 048
  4. KINEDAK [Concomitant]
     Active Substance: EPALRESTAT
     Dosage: DAILY DOSE: 150MG
     Route: 048
  5. SEIBULE [Concomitant]
     Active Substance: MIGLITOL
     Dosage: DAILY DOSE: 100MG
     Route: 048
  6. LIPITOR [Concomitant]
     Active Substance: ATORVASTATIN CALCIUM
     Dosage: DAILY DOSE: 10MG
     Route: 048
  7. HARNAL [Concomitant]
     Active Substance: TAMSULOSIN HYDROCHLORIDE
     Dosage: DAILY DOSE: 0.1 MG
     Route: 048
  8. NEXIUM [Concomitant]
     Active Substance: ESOMEPRAZOLE MAGNESIUM
     Dosage: DAILY DOSE: 20MG
     Route: 048
  9. SUREPOST [Concomitant]
     Active Substance: REPAGLINIDE
     Dosage: DAILY DOSE: 0.75MG
     Route: 048
  10. CERTOLIZUMAB PEGOL RA [Suspect]
     Active Substance: CERTOLIZUMAB PEGOL
     Indication: RHEUMATOID ARTHRITIS
     Dosage: 400 MG, EV 2 WEEKS(QOW)
     Route: 058
     Dates: start: 20130829
  11. AZULFIDINE EN-TABS [Concomitant]
     Active Substance: SULFASALAZINE
     Dosage: DAILY DOSE: 1000MG
     Route: 048
  12. DIOVAN [Concomitant]
     Active Substance: VALSARTAN
     Dosage: DAILY DOSE: 80MG
     Route: 048
  13. RHEUMATREX [Concomitant]
     Active Substance: METHOTREXATE SODIUM
     Dosage: UNK
     Route: 048
  14. CALONAL [Concomitant]
     Active Substance: ACETAMINOPHEN
     Dosage: DAILY DOSE: 600 MG
     Route: 048

REACTIONS (1)
  - Tinea pedis [Recovering/Resolving]

NARRATIVE: CASE EVENT DATE: 20131224
